APPROVED DRUG PRODUCT: CORTROPHIN-ZINC
Active Ingredient: CORTICOTROPIN-ZINC HYDROXIDE
Strength: 40 UNITS/ML
Dosage Form/Route: INJECTABLE;INJECTION
Application: N009854 | Product #001
Applicant: ANI PHARMACEUTICALS INC
Approved: Approved Prior to Jan 1, 1982 | RLD: No | RS: No | Type: DISCN